FAERS Safety Report 26190737 (Version 1)
Quarter: 2025Q4

REPORT INFORMATION
  Report Type: Spontaneous
  Country: GB (occurrence: GB)
  Receive Date: 20251223
  Receipt Date: 20251223
  Transmission Date: 20260117
  Serious: Yes (Other)
  Sender: RANBAXY
  Company Number: GB-MHRA-TPP5654022C10114687YC1765467084768

PATIENT
  Age: 72 Year
  Sex: Male
  Weight: 131 kg

DRUGS (20)
  1. ATORVASTATIN [Suspect]
     Active Substance: ATORVASTATIN
     Indication: Product used for unknown indication
     Dosage: 40 MILLIGRAM, DAILY
     Route: 065
     Dates: start: 20250717
  2. APIXABAN [Concomitant]
     Active Substance: APIXABAN
     Indication: Product used for unknown indication
     Dosage: TAKE ONE TWICE DAILY
     Route: 065
     Dates: start: 20230209
  3. BISOPROLOL [Concomitant]
     Active Substance: BISOPROLOL
     Indication: Product used for unknown indication
     Dosage: TAKE ONE DAILY
     Route: 065
     Dates: start: 20230209
  4. CYCLIZINE [Concomitant]
     Active Substance: CYCLIZINE
     Indication: Product used for unknown indication
     Dosage: ONE TO BE TAKEN THREE TIMES A DAY IF NEEDED FOR...
     Route: 065
     Dates: start: 20230209, end: 20251211
  5. DIGOXIN [Concomitant]
     Active Substance: DIGOXIN
     Indication: Product used for unknown indication
     Dosage: 2 TABLETS DAILY
     Route: 065
     Dates: start: 20230209
  6. GLUCORX NEXUS [Concomitant]
     Indication: Product used for unknown indication
     Dosage: USE AS DIRECTED
     Route: 065
     Dates: start: 20230209
  7. ISOSORBIDE MONONITRATE [Concomitant]
     Active Substance: ISOSORBIDE MONONITRATE
     Indication: Product used for unknown indication
     Dosage: TAKE TWO  EACH MORNING
     Route: 065
     Dates: start: 20230209
  8. LANSOPRAZOLE [Concomitant]
     Active Substance: LANSOPRAZOLE
     Indication: Product used for unknown indication
     Dosage: TAKE ONE ONCE DAILY 1/2 AN HOUR BEFORE BREAKFAST
     Route: 065
     Dates: start: 20230209
  9. METFORMIN [Concomitant]
     Active Substance: METFORMIN HYDROCHLORIDE
     Indication: Product used for unknown indication
     Dosage: 2 TWICE DAILY
     Route: 065
     Dates: start: 20230209
  10. RAMIPRIL [Concomitant]
     Active Substance: RAMIPRIL
     Indication: Product used for unknown indication
     Dosage: TAKE ONE DAILY
     Route: 065
     Dates: start: 20230209
  11. GLUCORX CAREPOINT [Concomitant]
     Indication: Product used for unknown indication
     Dosage: USE AS DIRECTED
     Route: 065
     Dates: start: 20230530
  12. HUMALOG [Concomitant]
     Active Substance: INSULIN LISPRO
     Indication: Product used for unknown indication
     Dosage: AS DIRECTED BY THE DIABETIC NURSE SPECIALIST AT...
     Route: 065
     Dates: start: 20230801
  13. TOUJEO [Concomitant]
     Active Substance: INSULIN GLARGINE
     Indication: Product used for unknown indication
     Dosage: AS DIRECTED BY THE DIABETIC NURSE AT MIDYORKS
     Route: 065
     Dates: start: 20230801
  14. ALBUTEROL [Concomitant]
     Active Substance: ALBUTEROL
     Indication: Product used for unknown indication
     Dosage: 2 PUFFS AS NEEDED ( ASTHMA REVIEW DUE)
     Route: 065
     Dates: start: 20240510
  15. EPLERENONE [Concomitant]
     Active Substance: EPLERENONE
     Indication: Product used for unknown indication
     Dosage: TAKE ONE DAILY
     Route: 065
     Dates: start: 20240717
  16. BECLOMETHASONE DIPROPIONATE [Concomitant]
     Active Substance: BECLOMETHASONE DIPROPIONATE
     Indication: Ill-defined disorder
     Dosage: INHALE 2 DOSES TWICE DAILY
     Route: 065
     Dates: start: 20240723
  17. COCODAMOL [Concomitant]
     Active Substance: ACETAMINOPHEN\CODEINE PHOSPHATE
     Indication: Ill-defined disorder
     Dosage: TAKE TWO 4 TIMES/DAY
     Route: 065
     Dates: start: 20250130
  18. FREESTYLE LIBRE 2 PLUS [Concomitant]
     Indication: Product used for unknown indication
     Dosage: APPLY ONE SENSOR AS PER MANUFACTURER^S INSTRUCT...
     Route: 065
     Dates: start: 20250214
  19. TIRZEPATIDE [Concomitant]
     Active Substance: TIRZEPATIDE
     Indication: Product used for unknown indication
     Dosage: USE ONE DOSE PER WEEK AS DIRECTED FOR FOUR WEEK...
     Route: 065
     Dates: start: 20250327
  20. EZETIMIBE [Concomitant]
     Active Substance: EZETIMIBE
     Indication: Product used for unknown indication
     Dosage: TAKE ONE DAILY
     Route: 065
     Dates: start: 20251211

REACTIONS (1)
  - Gastrooesophageal reflux disease [Recovered/Resolved]
